FAERS Safety Report 8991088 (Version 1)
Quarter: 2012Q4

REPORT INFORMATION
  Report Type: 
  Country: US (occurrence: US)
  Receive Date: 20121231
  Receipt Date: 20121231
  Transmission Date: 20130627
  Serious: Yes (Other)
  Sender: FDA-Public Use
  Company Number: US-BRISTOL-MYERS SQUIBB COMPANY-17231382

PATIENT
  Age: 41 Year
  Sex: Female

DRUGS (1)
  1. ORENCIA [Suspect]
     Dosage: Stopped on 19Oct2012
     Route: 058
     Dates: start: 201208

REACTIONS (3)
  - Surgery [Unknown]
  - Headache [Unknown]
  - Dizziness [Unknown]
